FAERS Safety Report 16696143 (Version 10)
Quarter: 2019Q4

REPORT INFORMATION
  Report Type: Report from Study
  Country: US (occurrence: US)
  Receive Date: 20190813
  Receipt Date: 20191003
  Transmission Date: 20200122
  Serious: Yes (Hospitalization, Other)
  Sender: FDA-Public Use
  Company Number: US-GILEAD-2019-0421465

PATIENT
  Age: 14 Year
  Sex: Male
  Weight: 34.8 kg

DRUGS (3)
  1. AMBRISENTAN [Suspect]
     Active Substance: AMBRISENTAN
     Indication: PULMONARY ARTERIAL HYPERTENSION
     Dosage: 5 MG, QD
     Route: 048
     Dates: start: 20190802
  2. TREPROSTINIL. [Concomitant]
     Active Substance: TREPROSTINIL
  3. OXYGEN. [Concomitant]
     Active Substance: OXYGEN

REACTIONS (23)
  - Cardiac failure [Not Recovered/Not Resolved]
  - Fatigue [Not Recovered/Not Resolved]
  - Flushing [Not Recovered/Not Resolved]
  - Pulmonary veno-occlusive disease [Unknown]
  - Product use issue [Unknown]
  - Weight increased [Unknown]
  - Nausea [Not Recovered/Not Resolved]
  - Headache [Not Recovered/Not Resolved]
  - Off label use [Not Recovered/Not Resolved]
  - Dyspnoea exertional [Not Recovered/Not Resolved]
  - Breath sounds abnormal [Unknown]
  - Diarrhoea [Unknown]
  - Rash [Not Recovered/Not Resolved]
  - Catheter site pruritus [Unknown]
  - Oedema peripheral [Unknown]
  - Cardiac arrest [Not Recovered/Not Resolved]
  - Pericardial effusion [Not Recovered/Not Resolved]
  - Pain [Unknown]
  - Biopsy lung [Recovered/Resolved]
  - Oxygen consumption increased [Unknown]
  - Pulmonary oedema [Unknown]
  - Respiratory rate increased [Unknown]
  - Vomiting [Not Recovered/Not Resolved]

NARRATIVE: CASE EVENT DATE: 20190807
